FAERS Safety Report 6091962-8 (Version None)
Quarter: 2009Q1

REPORT INFORMATION
  Report Type: 
  Country: None (occurrence: None)
  Receive Date: 20090225
  Receipt Date: 20081105
  Transmission Date: 20090719
  Serious: No
  Sender: FDA-Public Use
  Company Number: A0755020A

PATIENT
  Age: 53 Year
  Sex: Female

DRUGS (7)
  1. VALTREX [Suspect]
     Dosage: 2G TWICE PER DAY
     Route: 048
     Dates: start: 20081006, end: 20081104
  2. AUGMENTIN '125' [Suspect]
     Indication: PROPHYLAXIS
     Route: 065
     Dates: start: 19880101, end: 19880101
  3. UNKNOWN MEDICATION [Concomitant]
  4. LISINOPRIL [Concomitant]
  5. PREMARIN [Concomitant]
  6. PROGESTERONE [Concomitant]
  7. AMBIEN [Concomitant]

REACTIONS (6)
  - ABDOMINAL DISTENSION [None]
  - ABDOMINAL PAIN [None]
  - ABDOMINAL PAIN UPPER [None]
  - CHEST PAIN [None]
  - ERUCTATION [None]
  - RASH [None]
